FAERS Safety Report 8799656 (Version 2)
Quarter: 2013Q1

REPORT INFORMATION
  Report Type: Spontaneous
  Country: US (occurrence: US)
  Receive Date: 20120919
  Receipt Date: 20130207
  Transmission Date: 20140127
  Serious: No
  Sender: FDA-Public Use
  Company Number: US-009507513-1209USA006933

PATIENT
  Sex: Female

DRUGS (15)
  1. SINGULAIR [Suspect]
     Indication: ASTHMA
     Dosage: 10 MG, QD
     Route: 048
     Dates: start: 200209
  2. SINGULAIR [Suspect]
     Indication: SEASONAL ALLERGY
  3. BYSTOLIC [Concomitant]
  4. CYMBALTA [Concomitant]
  5. LOSARTAN POTASSIUM [Concomitant]
  6. NEXIUM [Concomitant]
  7. ZANTAC [Concomitant]
  8. NORVASC [Concomitant]
  9. FEMARA [Concomitant]
  10. ZETIA [Concomitant]
  11. LAMICTAL [Concomitant]
  12. TRADON [Concomitant]
  13. PROAIR (ALBUTEROL SULFATE) [Concomitant]
  14. ADVAIR [Concomitant]
  15. FLUCONAZOLE [Concomitant]

REACTIONS (2)
  - Cough [Not Recovered/Not Resolved]
  - Dysphonia [Not Recovered/Not Resolved]
